FAERS Safety Report 19053891 (Version 2)
Quarter: 2021Q1

REPORT INFORMATION
  Report Type: Report from Study
  Country: US (occurrence: US)
  Receive Date: 20210324
  Receipt Date: 20210330
  Transmission Date: 20210420
  Serious: No
  Sender: FDA-Public Use
  Company Number: NVSC2021US059970

PATIENT
  Sex: Female

DRUGS (1)
  1. GLATOPA [Suspect]
     Active Substance: GLATIRAMER ACETATE
     Indication: PRODUCT USED FOR UNKNOWN INDICATION
     Dosage: 40 MG
     Route: 065

REACTIONS (6)
  - Flushing [Unknown]
  - Heart rate increased [Unknown]
  - Tremor [Unknown]
  - Adverse drug reaction [Unknown]
  - Chills [Unknown]
  - Palpitations [Unknown]
